FAERS Safety Report 9157447 (Version 2)
Quarter: 2013Q2

REPORT INFORMATION
  Report Type: Spontaneous
  Country: US (occurrence: None)
  Receive Date: 20130308
  Receipt Date: 20130410
  Transmission Date: 20140414
  Serious: Yes (Death)
  Sender: FDA-Public Use
  Company Number: 1302-289

PATIENT
  Age: 87 Year
  Sex: Male

DRUGS (6)
  1. EYLEA [Suspect]
     Indication: MACULAR DEGENERATION
     Dosage: 2 MG, 1 IN 2 M
     Dates: start: 20120131
  2. VERAPAMIL [Concomitant]
  3. LISINOPRIL (LISINOPRIL) [Concomitant]
  4. WARFARIN [Concomitant]
  5. LORAZEPAM [Concomitant]
  6. PRAVASTATIN [Concomitant]

REACTIONS (1)
  - Death [None]
